FAERS Safety Report 9978901 (Version 1)
Quarter: 2014Q1

REPORT INFORMATION
  Report Type: Report from Study
  Country: US (occurrence: US)
  Receive Date: 20140306
  Receipt Date: 20140306
  Transmission Date: 20141002
  Serious: No
  Sender: FDA-Public Use
  Company Number: US-ABBVIE-13P-163-1173999-00

PATIENT
  Age: 47 Year
  Sex: Female
  Weight: 88.53 kg

DRUGS (7)
  1. HUMIRA [Suspect]
     Indication: CROHN^S DISEASE
     Route: 058
     Dates: start: 20131120, end: 20131120
  2. HUMIRA [Suspect]
     Route: 058
  3. HUMIRA [Suspect]
     Route: 058
  4. DILAUDID [Concomitant]
     Indication: HEADACHE
  5. VICODIN [Concomitant]
     Indication: HEADACHE
  6. ONDANSETRON [Concomitant]
     Indication: NAUSEA
  7. ONDANSETRON [Concomitant]
     Indication: VOMITING

REACTIONS (3)
  - Migraine [Unknown]
  - Nausea [Unknown]
  - Vomiting [Unknown]
